FAERS Safety Report 25100108 (Version 2)
Quarter: 2025Q2

REPORT INFORMATION
  Report Type: Spontaneous
  Country: US (occurrence: US)
  Receive Date: 20250320
  Receipt Date: 20250401
  Transmission Date: 20250717
  Serious: Yes (Death, Life-Threatening, Other)
  Sender: AUROBINDO
  Company Number: US-AUROBINDO-AUR-APL-2025-012892

PATIENT
  Age: 16 Year
  Sex: Male
  Weight: 80.28 kg

DRUGS (2)
  1. FLECAINIDE [Suspect]
     Active Substance: FLECAINIDE
     Indication: Arrhythmia
     Route: 065
  2. FLECAINIDE [Suspect]
     Active Substance: FLECAINIDE
     Indication: Completed suicide

REACTIONS (10)
  - Cardiac failure acute [Fatal]
  - Cardiac arrest [Fatal]
  - Hypertrophic cardiomyopathy [Fatal]
  - Nausea [Fatal]
  - Dyspnoea [Fatal]
  - Vomiting [Fatal]
  - Intentional overdose [Fatal]
  - Toxicity to various agents [Fatal]
  - Completed suicide [Fatal]
  - Poisoning [Unknown]
